FAERS Safety Report 7553893-3 (Version None)
Quarter: 2011Q2

REPORT INFORMATION
  Report Type: 
  Country: None (occurrence: None)
  Receive Date: 20110617
  Receipt Date: 20110607
  Transmission Date: 20111010
  Serious: Yes (Hospitalization, Other)
  Sender: FDA-Public Use
  Company Number: US-ELI_LILLY_AND_COMPANY-US201106002855

PATIENT
  Age: 50 Year
  Sex: Female

DRUGS (2)
  1. EFFIENT [Suspect]
     Dosage: 60 MG, LOADING DOSE
     Route: 065
     Dates: start: 20110520
  2. EFFIENT [Suspect]
     Dosage: 10 MG, MAINTENANCE DOSE
     Route: 065
     Dates: start: 20110501, end: 20110501

REACTIONS (5)
  - BACK PAIN [None]
  - CHEST PAIN [None]
  - DEEP VEIN THROMBOSIS [None]
  - PLATELET COUNT DECREASED [None]
  - ILL-DEFINED DISORDER [None]
